FAERS Safety Report 17358715 (Version 1)
Quarter: 2020Q1

REPORT INFORMATION
  Report Type: Spontaneous
  Country: US (occurrence: US)
  Receive Date: 20200201
  Receipt Date: 20200201
  Transmission Date: 20200409
  Serious: Yes (Other)
  Sender: FDA-Public Use
  Company Number: NVSC2020US019899

PATIENT
  Sex: Female

DRUGS (1)
  1. ENTRESTO [Suspect]
     Active Substance: SACUBITRIL\VALSARTAN
     Indication: PRODUCT USED FOR UNKNOWN INDICATION
     Dosage: UNK
     Route: 065

REACTIONS (8)
  - Asthma [Unknown]
  - Ear pain [Unknown]
  - Myalgia [Unknown]
  - Pain in jaw [Unknown]
  - Glucose tolerance impaired [Unknown]
  - Dizziness [Unknown]
  - Vertebral osteophyte [Unknown]
  - Chronic obstructive pulmonary disease [Unknown]
